FAERS Safety Report 5031484-6 (Version None)
Quarter: 2006Q2

REPORT INFORMATION
  Report Type: 
  Country: None (occurrence: None)
  Receive Date: 20060616
  Receipt Date: 20060605
  Transmission Date: 20061013
  Serious: Yes (Hospitalization)
  Sender: FDA-Public Use
  Company Number: TRP_0779_2006

PATIENT
  Age: 50 Year
  Sex: Male
  Weight: 62.5964 kg

DRUGS (4)
  1. RIBASPHERE [Suspect]
     Indication: HEPATITIS C
     Dosage: 1000 MG QDAY PO
     Route: 048
     Dates: start: 20060224, end: 20060101
  2. PEG-INTRON [Suspect]
     Indication: HEPATITIS C
     Dosage: 108 MCG QWK SC
     Route: 058
     Dates: start: 20060424
  3. RIBASPHERE [Suspect]
     Indication: HEPATITIS C
     Dosage: 800 MG QDAY PO
     Route: 048
     Dates: start: 20060101, end: 20060401
  4. RIBASPHERE [Suspect]
     Indication: HEPATITIS C
     Dosage: 600 MG QDAY PO
     Route: 048
     Dates: start: 20060401

REACTIONS (3)
  - ANAEMIA [None]
  - HAEMATEMESIS [None]
  - THROMBOCYTOPENIA [None]
